FAERS Safety Report 14181888 (Version 1)
Quarter: 2017Q4

REPORT INFORMATION
  Report Type: Spontaneous
  Country: US (occurrence: US)
  Receive Date: 20171113
  Receipt Date: 20171113
  Transmission Date: 20180321
  Serious: No
  Sender: FDA-Public Use
  Company Number: US-AUROBINDO-AUR-APU-2017-37975

PATIENT
  Age: 60 Year
  Sex: Female

DRUGS (3)
  1. ESOMEPRAZOLE MAGNESIUM DELAYED-RELEASE CAPSULES 40 MG [Suspect]
     Active Substance: ESOMEPRAZOLE MAGNESIUM
     Dosage: UNK, ONCE A DAY
     Route: 065
     Dates: start: 20170723, end: 20170724
  2. ESOMEPRAZOLE MAGNESIUM DELAYED-RELEASE CAPSULES 40 MG [Suspect]
     Active Substance: ESOMEPRAZOLE MAGNESIUM
     Indication: GASTROOESOPHAGEAL REFLUX DISEASE
     Dosage: UNK, ONCE A DAY
     Route: 065
     Dates: start: 20170406, end: 20170411
  3. NEXIUM [Concomitant]
     Active Substance: ESOMEPRAZOLE MAGNESIUM
     Indication: GASTROOESOPHAGEAL REFLUX DISEASE

REACTIONS (2)
  - Drug ineffective [Unknown]
  - Product substitution issue [Unknown]

NARRATIVE: CASE EVENT DATE: 2017
